FAERS Safety Report 10631580 (Version 2)
Quarter: 2015Q1

REPORT INFORMATION
  Report Type: Report from Study
  Country: FR (occurrence: FR)
  Receive Date: 20141205
  Receipt Date: 20150105
  Transmission Date: 20150720
  Serious: Yes (Other)
  Sender: FDA-Public Use
  Company Number: FR-ROCHE-1502644

PATIENT
  Age: 61 Year
  Sex: Male

DRUGS (1)
  1. ALTEPLASE [Suspect]
     Active Substance: ALTEPLASE
     Indication: CEREBROVASCULAR ACCIDENT
     Route: 042

REACTIONS (1)
  - Neurological decompensation [Unknown]
